FAERS Safety Report 15283175 (Version 1)
Quarter: 2018Q3

REPORT INFORMATION
  Report Type: Other
  Country: CA (occurrence: CA)
  Receive Date: 20180816
  Receipt Date: 20180816
  Transmission Date: 20181010
  Serious: Yes (Disabling, Other)
  Sender: FDA-Public Use
  Company Number: CA-APOTEX-2018AP018775

PATIENT
  Age: 87 Year
  Sex: Female

DRUGS (2)
  1. TRAMADOL. [Suspect]
     Active Substance: TRAMADOL
     Indication: PAIN
  2. TRAMADOL. [Suspect]
     Active Substance: TRAMADOL
     Indication: ROTATOR CUFF SYNDROME
     Dosage: 50 MG, QD
     Route: 048

REACTIONS (6)
  - Balance disorder [Unknown]
  - Nausea [Unknown]
  - Hallucination, visual [Unknown]
  - Vomiting [Unknown]
  - Vitreous detachment [Unknown]
  - Vitreous floaters [Unknown]
